FAERS Safety Report 5086088-6 (Version None)
Quarter: 2006Q3

REPORT INFORMATION
  Report Type: 
  Country: None (occurrence: None)
  Receive Date: 20060818
  Receipt Date: 20060809
  Transmission Date: 20061208
  Serious: Yes (Other)
  Sender: FDA-Public Use
  Company Number: 2006-08-0111

PATIENT
  Age: 58 Year
  Sex: Male

DRUGS (4)
  1. ELOCON [Suspect]
     Indication: DRY SKIN
     Dosage: BID TOP-DERM
     Route: 061
     Dates: start: 20060801, end: 20060801
  2. ELOCON [Suspect]
     Indication: PRURITUS
     Dosage: BID TOP-DERM
     Route: 061
     Dates: start: 20060801, end: 20060801
  3. MICARDIS [Concomitant]
  4. ASPIRIN [Concomitant]

REACTIONS (2)
  - CONDITION AGGRAVATED [None]
  - HYPERTENSION [None]
